FAERS Safety Report 5169463-0 (Version None)
Quarter: 2006Q4

REPORT INFORMATION
  Report Type: 
  Country: None (occurrence: None)
  Receive Date: 20061211
  Receipt Date: 20061201
  Transmission Date: 20070319
  Serious: Yes (Hospitalization)
  Sender: FDA-Public Use
  Company Number: GR-BOEHRINGER INGELHEIM PHARMACEUTICALS, INC.-2006-DE-06391GB

PATIENT
  Sex: Female
  Weight: 80 kg

DRUGS (3)
  1. BEROVENT [Suspect]
     Indication: RESPIRATORY TRACT INFECTION
     Dosage: STRENGTH: (0,5+2,5)/2,5 MG/ML, DAILY DOSE: 3 VIAL
     Route: 055
     Dates: start: 20060710, end: 20061011
  2. BEROVENT [Suspect]
     Dosage: STRENGTH: (0,5+2,5)/2,5 MG/ML, DAILY DOSE: 3 VIAL
     Route: 055
     Dates: start: 20061128
  3. ZITHROMAX [Concomitant]
     Indication: RESPIRATORY TRACT INFECTION
     Route: 048
     Dates: start: 20060704

REACTIONS (5)
  - CHAPPED LIPS [None]
  - EPISTAXIS [None]
  - HEPATIC ENZYME INCREASED [None]
  - TONGUE DISORDER [None]
  - VISION BLURRED [None]
